FAERS Safety Report 17340428 (Version 7)
Quarter: 2021Q1

REPORT INFORMATION
  Report Type: Report from Study
  Country: US (occurrence: US)
  Receive Date: 20200129
  Receipt Date: 20210112
  Transmission Date: 20210419
  Serious: Yes (Death, Hospitalization, Other)
  Sender: FDA-Public Use
  Company Number: NVSC2020US022370

PATIENT
  Age: 75 Year
  Sex: Male

DRUGS (1)
  1. ENTRESTO [Suspect]
     Active Substance: SACUBITRIL\VALSARTAN
     Indication: CARDIAC FAILURE
     Dosage: 1 DF, BID (24MG SACUBITRIL/ 26MG VALSARTAN)
     Route: 048
     Dates: start: 201904

REACTIONS (13)
  - Pneumonia [Unknown]
  - Bladder cancer [Unknown]
  - Blood urine present [Unknown]
  - Fatigue [Unknown]
  - Cerebrovascular accident [Unknown]
  - Fall [Unknown]
  - Deep vein thrombosis [Unknown]
  - Dyspnoea [Unknown]
  - Bronchial disorder [Unknown]
  - Lung neoplasm malignant [Fatal]
  - Liver disorder [Unknown]
  - Lymphoma [Unknown]
  - Myocardial infarction [Unknown]

NARRATIVE: CASE EVENT DATE: 201908
